FAERS Safety Report 6188303-4 (Version None)
Quarter: 2009Q2

REPORT INFORMATION
  Report Type: 
  Country: None (occurrence: None)
  Receive Date: 20090513
  Receipt Date: 20090429
  Transmission Date: 20091009
  Serious: Yes (Other)
  Sender: FDA-Public Use
  Company Number: US-PFIZER INC-2005155262

PATIENT
  Sex: Female
  Weight: 58.05 kg

DRUGS (8)
  1. PROVERA [Suspect]
     Indication: HORMONE REPLACEMENT THERAPY
     Dosage: UNK
     Dates: start: 19900101, end: 19990701
  2. PROVERA [Suspect]
     Indication: MENOPAUSE
  3. MEDROXYPROGESTERONE AND MEDROXYPROGESTERONE ACETATE [Suspect]
     Indication: HORMONE REPLACEMENT THERAPY
     Dosage: UNK
     Dates: start: 19900101, end: 19990101
  4. MEDROXYPROGESTERONE AND MEDROXYPROGESTERONE ACETATE [Suspect]
     Indication: MENOPAUSE
  5. PREMARIN [Suspect]
     Indication: HORMONE REPLACEMENT THERAPY
     Dosage: UNK
     Dates: start: 19900101, end: 19990701
  6. PREMARIN [Suspect]
     Indication: MENOPAUSE
  7. PREMPRO [Suspect]
     Indication: HORMONE REPLACEMENT THERAPY
     Dosage: UNK
     Dates: start: 19990701, end: 20041001
  8. PREMPRO [Suspect]
     Indication: MENOPAUSE

REACTIONS (1)
  - BREAST CANCER FEMALE [None]
